FAERS Safety Report 22850369 (Version 3)
Quarter: 2023Q4

REPORT INFORMATION
  Report Type: Spontaneous
  Country: US (occurrence: US)
  Receive Date: 20230822
  Receipt Date: 20231026
  Transmission Date: 20240110
  Serious: Yes (Other)
  Sender: FDA-Public Use
  Company Number: US-KOREA IPSEN Pharma-2023-19606

PATIENT
  Age: 41 Year
  Sex: Female

DRUGS (2)
  1. DYSPORT [Suspect]
     Active Substance: ABOBOTULINUMTOXINA
     Indication: Skin wrinkling
     Route: 065
     Dates: start: 20230803, end: 20230803
  2. VITAMIN D [Concomitant]
     Active Substance: VITAMIN D NOS

REACTIONS (25)
  - Neuromuscular toxicity [Unknown]
  - Hypoaesthesia [Unknown]
  - Thirst [Unknown]
  - Tongue dry [Unknown]
  - Swollen tongue [Unknown]
  - Muscular weakness [Unknown]
  - Hyporeflexia [Unknown]
  - Headache [Unknown]
  - Asthenia [Unknown]
  - Skin disorder [Unknown]
  - Bowel movement irregularity [Unknown]
  - Vision blurred [Unknown]
  - Eye irritation [Unknown]
  - Dysphonia [Unknown]
  - Lymphocyte count decreased [Unknown]
  - Neutrophil count increased [Unknown]
  - Gait disturbance [Unknown]
  - Dyskinesia [Unknown]
  - Stress [Unknown]
  - Musculoskeletal stiffness [Unknown]
  - Aphonia [Recovered/Resolved]
  - Eye movement disorder [Unknown]
  - Nasal discomfort [Unknown]
  - Asthenia [Unknown]
  - Injection site swelling [Unknown]

NARRATIVE: CASE EVENT DATE: 20230806
